FAERS Safety Report 12326759 (Version 2)
Quarter: 2016Q2

REPORT INFORMATION
  Report Type: Spontaneous
  Country: FR (occurrence: FR)
  Receive Date: 20160503
  Receipt Date: 20160615
  Transmission Date: 20160815
  Serious: Yes (Hospitalization, Other)
  Sender: FDA-Public Use
  Company Number: FR-IPSEN BIOPHARMACEUTICALS, INC.-2016-03656

PATIENT
  Age: 83 Year
  Sex: Female
  Weight: 56 kg

DRUGS (7)
  1. DYSPORT [Suspect]
     Active Substance: ABOBOTULINUMTOXINA
     Indication: TORTICOLLIS
  2. IMETH 10 [Concomitant]
     Indication: RHEUMATOID ARTHRITIS
  3. LERCANIDIPINE 10 [Concomitant]
     Indication: HYPERTENSION
  4. KALEORID 600 [Concomitant]
  5. COAPROVEL [Concomitant]
     Active Substance: HYDROCHLOROTHIAZIDE\IRBESARTAN
  6. SPECIAFOLDINE 5 [Concomitant]
     Indication: RHEUMATOID ARTHRITIS
  7. DYSPORT [Suspect]
     Active Substance: ABOBOTULINUMTOXINA
     Indication: HEAD TITUBATION
     Dosage: 200 UNITS
     Route: 030
     Dates: start: 20160212, end: 20160212

REACTIONS (2)
  - Muscular weakness [Recovering/Resolving]
  - Dysphagia [Recovered/Resolved]

NARRATIVE: CASE EVENT DATE: 20160213
